FAERS Safety Report 6608916-2 (Version None)
Quarter: 2010Q1

REPORT INFORMATION
  Report Type: 
  Country: None (occurrence: None)
  Receive Date: 20100301
  Receipt Date: 20100218
  Transmission Date: 20100710
  Serious: Yes (Other)
  Sender: FDA-Public Use
  Company Number: US-PFIZER INC-2010022839

PATIENT
  Sex: Female

DRUGS (2)
  1. CHANTIX [Suspect]
     Indication: SMOKING CESSATION THERAPY
     Dosage: 0.5 MG, 1X/DAY
     Dates: start: 20091001, end: 20091208
  2. LASIX [Concomitant]
     Dosage: UNK

REACTIONS (4)
  - AKINESIA [None]
  - ANXIETY [None]
  - DRUG INEFFECTIVE [None]
  - PANIC ATTACK [None]
